FAERS Safety Report 12666900 (Version 1)
Quarter: 2016Q3

REPORT INFORMATION
  Report Type: Spontaneous
  Country: US (occurrence: US)
  Receive Date: 20160819
  Receipt Date: 20160819
  Transmission Date: 20161109
  Serious: Yes (Other)
  Sender: FDA-Public Use
  Company Number: US-SUN PHARMACEUTICAL INDUSTRIES LTD-2016US-121735

PATIENT
  Age: 47 Year
  Sex: Female

DRUGS (29)
  1. WARFARIN [Interacting]
     Active Substance: WARFARIN
     Dosage: 10 MG, DAILY
  2. ESOMEPRAZOLE [Concomitant]
     Active Substance: ESOMEPRAZOLE
     Indication: PRODUCT USED FOR UNKNOWN INDICATION
     Dosage: UNK
  3. FLUOXETINE [Concomitant]
     Active Substance: FLUOXETINE HYDROCHLORIDE
     Indication: PRODUCT USED FOR UNKNOWN INDICATION
     Dosage: UNK
  4. WARFARIN [Interacting]
     Active Substance: WARFARIN
     Indication: DEEP VEIN THROMBOSIS
     Dosage: 10 MG, UNK
     Route: 048
  5. WARFARIN [Interacting]
     Active Substance: WARFARIN
     Dosage: 7.5 MG, UNK
     Route: 048
  6. WARFARIN [Interacting]
     Active Substance: WARFARIN
     Dosage: 10 MG, DAILY
     Route: 048
  7. WARFARIN [Interacting]
     Active Substance: WARFARIN
     Dosage: 15 MG, UNK
  8. DULOXETINE. [Concomitant]
     Active Substance: DULOXETINE
     Indication: PRODUCT USED FOR UNKNOWN INDICATION
     Dosage: UNK
  9. WARFARIN [Interacting]
     Active Substance: WARFARIN
     Dosage: 5 MG
     Route: 048
  10. WARFARIN [Interacting]
     Active Substance: WARFARIN
     Dosage: 10 MG, DAILY
  11. WARFARIN [Interacting]
     Active Substance: WARFARIN
     Dosage: 12.5 MG, UNK
  12. WARFARIN [Interacting]
     Active Substance: WARFARIN
     Dosage: 12.5 MG, UNK
  13. METRONIDAZOLE. [Concomitant]
     Active Substance: METRONIDAZOLE
     Indication: PRODUCT USED FOR UNKNOWN INDICATION
     Dosage: UNK
  14. MIRTAZAPINE. [Concomitant]
     Active Substance: MIRTAZAPINE
     Indication: PRODUCT USED FOR UNKNOWN INDICATION
     Dosage: UNK
  15. ACETAMINOPHEN. [Concomitant]
     Active Substance: ACETAMINOPHEN
     Indication: PRODUCT USED FOR UNKNOWN INDICATION
     Dosage: UNK
  16. WARFARIN [Interacting]
     Active Substance: WARFARIN
     Dosage: 10 MG, DAILY
     Route: 048
  17. WARFARIN [Interacting]
     Active Substance: WARFARIN
     Dosage: 10 MG, UNK
  18. CIPROFLOXACIN. [Concomitant]
     Active Substance: CIPROFLOXACIN
     Indication: PRODUCT USED FOR UNKNOWN INDICATION
     Dosage: UNK
  19. TRAMADOL. [Concomitant]
     Active Substance: TRAMADOL
     Indication: PRODUCT USED FOR UNKNOWN INDICATION
     Dosage: UNK
  20. PHENYTOIN. [Suspect]
     Active Substance: PHENYTOIN
     Indication: SEIZURE
     Dosage: 400 MG, AT BEDTIME
     Route: 048
  21. WARFARIN [Interacting]
     Active Substance: WARFARIN
     Dosage: 5 MG, UNK
     Route: 048
  22. WARFARIN [Interacting]
     Active Substance: WARFARIN
     Dosage: 12.5 MG, UNK
  23. WARFARIN [Interacting]
     Active Substance: WARFARIN
     Dosage: 12.5 MG, UNK
  24. ATENOLOL. [Concomitant]
     Active Substance: ATENOLOL
     Indication: PRODUCT USED FOR UNKNOWN INDICATION
     Dosage: UNK
  25. WARFARIN [Interacting]
     Active Substance: WARFARIN
     Dosage: 10 MG, DAILY
     Route: 048
  26. WARFARIN [Interacting]
     Active Substance: WARFARIN
     Dosage: 10 MG, DAILY
  27. ENOXAPARIN [Concomitant]
     Active Substance: ENOXAPARIN
     Indication: DEEP VEIN THROMBOSIS
     Dosage: 60 MG, EVERY 12 HOURS
     Route: 058
  28. SERTRALINE [Concomitant]
     Active Substance: SERTRALINE HYDROCHLORIDE
     Indication: PRODUCT USED FOR UNKNOWN INDICATION
     Dosage: UNK
  29. TRAZODONE [Concomitant]
     Active Substance: TRAZODONE HYDROCHLORIDE
     Indication: PRODUCT USED FOR UNKNOWN INDICATION
     Dosage: UNK

REACTIONS (7)
  - Drug interaction [Recovered/Resolved]
  - Aspartate aminotransferase increased [Unknown]
  - Gamma-glutamyltransferase increased [Unknown]
  - Blood alkaline phosphatase increased [Unknown]
  - Purple glove syndrome [Recovering/Resolving]
  - International normalised ratio fluctuation [Recovering/Resolving]
  - Alanine aminotransferase increased [Unknown]
